FAERS Safety Report 7285279-3 (Version None)
Quarter: 2011Q1

REPORT INFORMATION
  Report Type: 
  Country: None (occurrence: None)
  Receive Date: 20110204
  Receipt Date: 20110204
  Transmission Date: 20110831
  Serious: Yes (Hospitalization)
  Sender: FDA-Public Use
  Company Number: None

PATIENT
  Age: 74 Year
  Sex: Male
  Weight: 111.58 kg

DRUGS (1)
  1. HYDROCORTISONE/ POLYMYCIN B [Suspect]
     Indication: OTITIS EXTERNA
     Dates: start: 20101004, end: 20101008

REACTIONS (1)
  - OTITIS EXTERNA [None]
